FAERS Safety Report 6305328-6 (Version None)
Quarter: 2009Q3

REPORT INFORMATION
  Report Type: 
  Country: None (occurrence: None)
  Receive Date: 20090811
  Receipt Date: 20090803
  Transmission Date: 20100115
  Serious: Yes (Hospitalization)
  Sender: FDA-Public Use
  Company Number: FR-ABBOTT-09P-056-0589089-00

PATIENT
  Sex: Male

DRUGS (4)
  1. NORVIR [Suspect]
     Indication: HIV INFECTION
     Route: 048
     Dates: start: 20080101
  2. VELBE [Interacting]
     Indication: HODGKIN'S DISEASE
     Dosage: 11.5 DAILY DOSE, X 3 TIMES
     Route: 042
     Dates: start: 20090603, end: 20090622
  3. TELZIR [Interacting]
     Indication: HIV INFECTION
     Route: 048
     Dates: start: 20080101
  4. TRUVADA [Concomitant]
     Indication: HIV INFECTION

REACTIONS (3)
  - ATAXIA [None]
  - DRUG INTERACTION [None]
  - MENTAL DISORDER DUE TO A GENERAL MEDICAL CONDITION [None]
